FAERS Safety Report 5261630-0 (Version None)
Quarter: 2007Q1

REPORT INFORMATION
  Report Type: 
  Country: None (occurrence: None)
  Receive Date: 20061218
  Receipt Date: 20060727
  Transmission Date: 20070707
  Serious: No
  Sender: FDA-Public Use
  Company Number: US200607005067

PATIENT
  Age: 56 Year
  Sex: Male

DRUGS (9)
  1. CIALIS [Suspect]
     Indication: PROSTATECTOMY
     Dosage: 20 MG, AS NEEDED
     Dates: start: 20040101
  2. PANTOPRAZOLE SODIUM [Concomitant]
  3. FEXOFENADINE HCL [Concomitant]
  4. FLUTICASONE PROPIONATE [Concomitant]
  5. MULTIPLE VITAMINS (ASCORBIC ACID, ERGOCALCIFEROL, FOLIC ACID, RETINOL, [Concomitant]
  6. GLUCOSAMINE W/CHONDROITIN (CHONDROITIN SULFATE, GLUCOSAMINE) [Concomitant]
  7. CALCIUM (CALCIUM) [Concomitant]
  8. FISH OIL (FISH OIL) [Concomitant]
  9. NAPROXEN [Concomitant]

REACTIONS (6)
  - DRUG INEFFECTIVE [None]
  - FLUSHING [None]
  - HEADACHE [None]
  - MYALGIA [None]
  - NASAL CONGESTION [None]
  - NEURALGIA [None]
